FAERS Safety Report 14280872 (Version 1)
Quarter: 2017Q4

REPORT INFORMATION
  Report Type: Spontaneous
  Country: US (occurrence: US)
  Receive Date: 20171213
  Receipt Date: 20171213
  Transmission Date: 20180321
  Serious: Yes (Other)
  Sender: FDA-Public Use
  Company Number: None

PATIENT
  Age: 58 Year
  Sex: Female
  Weight: 61.4 kg

DRUGS (1)
  1. BEVACIZUMAB. [Suspect]
     Active Substance: BEVACIZUMAB
     Indication: PERITONEAL MESOTHELIOMA MALIGNANT
     Dosage: OTHER FREQUENCY:Q21 DAYS;?
     Route: 042
     Dates: start: 20170519, end: 20171201

REACTIONS (1)
  - Retinal haemorrhage [None]

NARRATIVE: CASE EVENT DATE: 20171204
